FAERS Safety Report 7043513-9 (Version None)
Quarter: 2010Q4

REPORT INFORMATION
  Report Type: 
  Country: None (occurrence: None)
  Receive Date: 20101013
  Receipt Date: 20101004
  Transmission Date: 20110411
  Serious: Yes (Hospitalization, Congenital Anomaly)
  Sender: FDA-Public Use
  Company Number: A0678470A

PATIENT
  Sex: Male

DRUGS (5)
  1. PAXIL [Suspect]
     Indication: ANXIETY
     Dates: start: 20031001, end: 20070101
  2. PAROXETINE HYDROCHLORIDE [Suspect]
     Indication: ANXIETY
     Dates: start: 20000628, end: 20060629
  3. PRENATAL VITAMINS [Concomitant]
     Indication: PREGNANCY
     Dates: start: 20011001
  4. ALPRAZOLAM [Concomitant]
     Indication: ANXIETY
     Dosage: 1MG AS REQUIRED
     Dates: start: 20010101, end: 20060101
  5. IRON SUPPLEMENT [Concomitant]

REACTIONS (7)
  - ATRIAL SEPTAL DEFECT [None]
  - CONGENITAL MITRAL VALVE INCOMPETENCE [None]
  - CONGENITAL TRICUSPID VALVE INCOMPETENCE [None]
  - DRUG EXPOSURE DURING PREGNANCY [None]
  - HYDROCEPHALUS [None]
  - PERSISTENT FOETAL CIRCULATION [None]
  - RESPIRATORY RATE DECREASED [None]
